FAERS Safety Report 6529049-X (Version None)
Quarter: 2009Q4

REPORT INFORMATION
  Report Type: 
  Country: None (occurrence: None)
  Receive Date: 20091224
  Receipt Date: 20091209
  Transmission Date: 20100525
  Serious: Yes (Hospitalization)
  Sender: FDA-Public Use
  Company Number: B0617080A

PATIENT
  Age: 35 Year
  Sex: Male

DRUGS (3)
  1. LAMIVUDINE [Suspect]
     Indication: HIV INFECTION
  2. STAVUDINE [Suspect]
     Indication: HIV INFECTION
  3. EFAVIRENZ [Suspect]
     Indication: HIV INFECTION

REACTIONS (13)
  - ARTHRALGIA [None]
  - BONE LESION [None]
  - CRYPTOCOCCOSIS [None]
  - CSF GLUCOSE INCREASED [None]
  - CSF PROTEIN INCREASED [None]
  - IMMUNE RECONSTITUTION SYNDROME [None]
  - JOINT SWELLING [None]
  - LUNG DISORDER [None]
  - PAIN [None]
  - PATHOLOGICAL FRACTURE [None]
  - PURULENCE [None]
  - SUBCUTANEOUS ABSCESS [None]
  - SWELLING [None]
